APPROVED DRUG PRODUCT: NICOTINE POLACRILEX
Active Ingredient: NICOTINE POLACRILEX
Strength: EQ 4MG BASE
Dosage Form/Route: TROCHE/LOZENGE;ORAL
Application: A090821 | Product #002
Applicant: PERRIGO R AND D CO
Approved: Jul 10, 2009 | RLD: No | RS: No | Type: OTC